FAERS Safety Report 14040658 (Version 1)
Quarter: 2017Q4

REPORT INFORMATION
  Report Type: Spontaneous
  Country: US (occurrence: US)
  Receive Date: 20171004
  Receipt Date: 20171004
  Transmission Date: 20180321
  Serious: Yes (Hospitalization)
  Sender: FDA-Public Use
  Company Number: US-IMPAX LABORATORIES, INC-2017-IPXL-02800

PATIENT
  Age: 66 Year
  Sex: Male

DRUGS (2)
  1. BACLOFEN. [Suspect]
     Active Substance: BACLOFEN
     Indication: PRODUCT USE IN UNAPPROVED INDICATION
  2. BACLOFEN. [Suspect]
     Active Substance: BACLOFEN
     Indication: MUSCLE SPASMS
     Dosage: 5 MG, TWICE DAILY
     Route: 065

REACTIONS (9)
  - Drug-disease interaction [Recovered/Resolved]
  - Product use in unapproved indication [Unknown]
  - Toxicity to various agents [Recovered/Resolved]
  - Slow response to stimuli [Recovered/Resolved]
  - Encephalopathy [Recovered/Resolved]
  - Depressed level of consciousness [Recovered/Resolved]
  - Hyporeflexia [Recovered/Resolved]
  - Hypotonia [Recovered/Resolved]
  - Somnolence [Recovered/Resolved]
